FAERS Safety Report 19867381 (Version 3)
Quarter: 2021Q4

REPORT INFORMATION
  Report Type: Report from Study
  Country: US (occurrence: US)
  Receive Date: 20210922
  Receipt Date: 20211222
  Transmission Date: 20220303
  Serious: Yes (Other)
  Sender: FDA-Public Use
  Company Number: US-MYLANLABS-2021M1025872

PATIENT
  Age: 32 Year
  Sex: Female
  Weight: 93.8 kg

DRUGS (2)
  1. GLATIRAMER ACETATE [Suspect]
     Active Substance: GLATIRAMER ACETATE
     Indication: Multiple sclerosis
     Dosage: 40 MILLIGRAM, 3XW
     Route: 058
  2. ALBUTEROL [Concomitant]
     Active Substance: ALBUTEROL
     Dosage: UNK

REACTIONS (21)
  - Tunnel vision [Recovered/Resolved]
  - Loss of consciousness [Unknown]
  - Panic attack [Recovered/Resolved]
  - Dizziness [Unknown]
  - Feeling hot [Recovered/Resolved]
  - Cold sweat [Unknown]
  - Illness [Unknown]
  - Injection site pain [Unknown]
  - Injection site bruising [Unknown]
  - Injection site mass [Unknown]
  - Palpitations [Recovered/Resolved]
  - Injection site pruritus [Unknown]
  - Dyspnoea [Recovered/Resolved]
  - Fatigue [Recovered/Resolved]
  - Vomiting [Unknown]
  - Purging [Unknown]
  - Impaired quality of life [Unknown]
  - Mental disorder [Unknown]
  - Injection site erythema [Unknown]
  - Asthenia [Unknown]
  - Anxiety [Unknown]

NARRATIVE: CASE EVENT DATE: 20210903
